FAERS Safety Report 24652456 (Version 1)
Quarter: 2024Q4

REPORT INFORMATION
  Report Type: Spontaneous
  Country: GB (occurrence: GB)
  Receive Date: 20241122
  Receipt Date: 20241122
  Transmission Date: 20250115
  Serious: Yes (Other)
  Sender: PERRIGO
  Company Number: None

PATIENT
  Age: 90 Year
  Sex: Female
  Weight: 91 kg

DRUGS (5)
  1. PERMETHRIN [Suspect]
     Active Substance: PERMETHRIN
     Indication: Adverse drug reaction
     Dosage: APPLY TWICE ONE WEEK APART
     Route: 065
     Dates: start: 20240916
  2. ACIDEX ADVANCE [Concomitant]
     Indication: Dyspepsia
     Route: 065
     Dates: start: 20240905
  3. CETIRIZINE [Concomitant]
     Active Substance: CETIRIZINE HYDROCHLORIDE
     Indication: Pruritus
     Route: 065
     Dates: start: 20241011
  4. MEMANTINE [Concomitant]
     Active Substance: MEMANTINE
     Indication: Dementia
     Route: 065
     Dates: start: 20220912
  5. ACETAMINOPHEN [Concomitant]
     Active Substance: ACETAMINOPHEN
     Indication: Analgesic therapy
     Route: 065
     Dates: start: 20240319

REACTIONS (1)
  - Jaundice [Recovering/Resolving]

NARRATIVE: CASE EVENT DATE: 20241021
